FAERS Safety Report 6080580-3 (Version None)
Quarter: 2009Q1

REPORT INFORMATION
  Report Type: 
  Country: None (occurrence: None)
  Receive Date: 20090217
  Receipt Date: 20090209
  Transmission Date: 20090719
  Serious: Yes (Hospitalization)
  Sender: FDA-Public Use
  Company Number: US-BIOGENIDEC-2006BI010992

PATIENT
  Age: 43 Year
  Sex: Female

DRUGS (6)
  1. AVONEX [Suspect]
     Indication: MULTIPLE SCLEROSIS
     Route: 030
     Dates: start: 20010101, end: 20030801
  2. AVONEX [Suspect]
     Route: 030
     Dates: start: 20030803, end: 20070101
  3. CELEBREX [Concomitant]
     Indication: MUSCULOSKELETAL PAIN
  4. LYRICA [Concomitant]
     Indication: NEUROPATHY PERIPHERAL
  5. LYRICA [Concomitant]
     Indication: LIMB DISCOMFORT
  6. AMBIEN [Concomitant]
     Indication: INSOMNIA

REACTIONS (2)
  - DIABETES MELLITUS [None]
  - MULTIPLE SCLEROSIS RELAPSE [None]
